FAERS Safety Report 18234525 (Version 2)
Quarter: 2021Q1

REPORT INFORMATION
  Report Type: Spontaneous
  Country: US (occurrence: US)
  Receive Date: 20200904
  Receipt Date: 20210325
  Transmission Date: 20210419
  Serious: Yes (Hospitalization, Other)
  Sender: FDA-Public Use
  Company Number: US-PURDUE-USA-2020-0164758

PATIENT
  Sex: Male

DRUGS (2)
  1. OXYCONTIN [Suspect]
     Active Substance: OXYCODONE HYDROCHLORIDE
     Indication: PRODUCT USED FOR UNKNOWN INDICATION
     Dosage: UNKNOWN
     Route: 048
  2. XANAX [Suspect]
     Active Substance: ALPRAZOLAM
     Indication: DEPRESSION
     Dosage: UNKNOWN
     Route: 048

REACTIONS (20)
  - Drug withdrawal syndrome [Unknown]
  - Loss of consciousness [Unknown]
  - Hypersomnia [Unknown]
  - Limb crushing injury [Unknown]
  - Hospitalisation [Unknown]
  - Psychotic disorder [Unknown]
  - Drug dependence [Recovered/Resolved]
  - Seizure [Unknown]
  - Anger [Unknown]
  - Illness [Unknown]
  - Road traffic accident [Unknown]
  - Amnesia [Unknown]
  - Pain [Unknown]
  - Speech disorder [Unknown]
  - Depression [Unknown]
  - Injury [Unknown]
  - Fall [Unknown]
  - Impaired driving ability [Unknown]
  - Somnambulism [Unknown]
  - Contusion [Unknown]
